FAERS Safety Report 5077408-7 (Version None)
Quarter: 2006Q3

REPORT INFORMATION
  Report Type: 
  Country: None (occurrence: None)
  Receive Date: 20060810
  Receipt Date: 20060215
  Transmission Date: 20061208
  Serious: No
  Sender: FDA-Public Use
  Company Number: US-GLAXOSMITHKLINE-A0593856A

PATIENT
  Age: 24 Year
  Sex: Female

DRUGS (4)
  1. PAROXETINE HCL [Suspect]
     Dosage: 30MG PER DAY
     Route: 048
  2. XANAX [Concomitant]
  3. PENICILLIN [Concomitant]
  4. ALBUTEROL SPIROS [Concomitant]

REACTIONS (1)
  - FALSE POSITIVE LABORATORY RESULT [None]
